FAERS Safety Report 9207938 (Version 6)
Quarter: 2014Q3

REPORT INFORMATION
  Report Type: Spontaneous
  Country: US (occurrence: US)
  Receive Date: 20130403
  Receipt Date: 20140903
  Transmission Date: 20150326
  Serious: Yes (Disabling)
  Sender: FDA-Public Use
  Company Number: US-009507513-1109USA02460

PATIENT
  Sex: Male

DRUGS (2)
  1. PROPECIA [Suspect]
     Active Substance: FINASTERIDE
     Indication: ALOPECIA
  2. PROPECIA [Suspect]
     Active Substance: FINASTERIDE
     Indication: ANDROGENETIC ALOPECIA
     Dosage: 1 MG, QD
     Route: 048
     Dates: start: 200801, end: 201107

REACTIONS (19)
  - Adenoidectomy [Unknown]
  - Depression [Unknown]
  - Cognitive disorder [Unknown]
  - Diabetes mellitus [Unknown]
  - Sexual dysfunction [Unknown]
  - Memory impairment [Unknown]
  - Oral herpes [Unknown]
  - Sexual dysfunction [Recovered/Resolved]
  - Genital disorder male [Unknown]
  - Nasal septal operation [Unknown]
  - Emotional distress [Unknown]
  - Constipation [Unknown]
  - Libido decreased [Recovering/Resolving]
  - Erectile dysfunction [Unknown]
  - Feeling abnormal [Recovering/Resolving]
  - Tonsillectomy [Unknown]
  - Drug ineffective [Unknown]
  - Anxiety [Unknown]
  - Genital pain [Unknown]

NARRATIVE: CASE EVENT DATE: 2008
